FAERS Safety Report 18574983 (Version 3)
Quarter: 2021Q1

REPORT INFORMATION
  Report Type: Report from Study
  Country: PL (occurrence: PL)
  Receive Date: 20201203
  Receipt Date: 20210108
  Transmission Date: 20210419
  Serious: Yes (Hospitalization, Other)
  Sender: FDA-Public Use
  Company Number: PL-PFIZER INC-2020474519

PATIENT
  Age: 32 Year
  Sex: Female
  Weight: 97 kg

DRUGS (16)
  1. ACETYLSALICYLIC ACID [Suspect]
     Active Substance: ASPIRIN
     Dosage: UNK
     Route: 065
     Dates: start: 20200314, end: 20200316
  2. FRAXIPARINE [Suspect]
     Active Substance: NADROPARIN CALCIUM
     Dosage: UNK
     Route: 065
     Dates: start: 20200317, end: 20200326
  3. OLFEN UNO [Concomitant]
     Active Substance: DICLOFENAC SODIUM
     Dosage: UNK
     Dates: start: 20171130
  4. TRAMAL [Suspect]
     Active Substance: TRAMADOL
     Dosage: UNK
     Route: 065
     Dates: start: 20200314, end: 20200316
  5. NORELGESTROMIN [Concomitant]
     Active Substance: NORELGESTROMIN
     Dosage: UNK
     Dates: start: 20170307
  6. EUTHYROX [Concomitant]
     Active Substance: LEVOTHYROXINE SODIUM
     Dosage: UNK
     Dates: start: 20190820, end: 20200730
  7. OFATUMUMAB [Suspect]
     Active Substance: OFATUMUMAB
     Indication: RELAPSING MULTIPLE SCLEROSIS
     Dosage: 20 MG, MONTHLY (Q4WEEKS)
     Route: 030
     Dates: start: 20190813
  8. PYRALGIN [METAMIZOLE SODIUM;NIMESULIDE] [Suspect]
     Active Substance: METAMIZOLE\NIMESULIDE
     Dosage: UNK
     Route: 065
     Dates: start: 20200314, end: 20200316
  9. OFATUMUMAB [Suspect]
     Active Substance: OFATUMUMAB
     Dosage: UNK
     Route: 065
     Dates: start: 20190819
  10. FRAXIPARINE [Suspect]
     Active Substance: NADROPARIN CALCIUM
     Dosage: UNK
     Route: 065
     Dates: start: 20200314, end: 20200316
  11. METOCLOPRAMID [METOCLOPRAMIDE HYDROCHLORIDE] [Suspect]
     Active Substance: METOCLOPRAMIDE HYDROCHLORIDE
     Dosage: UNK
     Route: 065
     Dates: start: 20200314, end: 20200316
  12. METOCLOPRAMID [METOCLOPRAMIDE HYDROCHLORIDE] [Suspect]
     Active Substance: METOCLOPRAMIDE HYDROCHLORIDE
     Dosage: UNK
     Route: 065
     Dates: start: 20200317, end: 20200321
  13. ETHINYLESTRADIOL [Concomitant]
     Active Substance: ETHINYL ESTRADIOL
     Dosage: UNK
     Dates: start: 20170307
  14. CONTROLOC [Suspect]
     Active Substance: PANTOPRAZOLE SODIUM
     Dosage: UNK
     Dates: start: 20200314, end: 20200316
  15. BIOTAKSYM [Suspect]
     Active Substance: CEFOTAXIME SODIUM
     Dosage: UNK
     Route: 065
     Dates: start: 20200314, end: 20200316
  16. KETONAL [KETOPROFEN] [Suspect]
     Active Substance: KETOPROFEN
     Dosage: UNK
     Route: 065
     Dates: start: 20200314, end: 20200316

REACTIONS (3)
  - Cholecystitis [Recovered/Resolved]
  - Peritoneal adhesions [Recovered/Resolved]
  - Obesity [Recovered/Resolved]

NARRATIVE: CASE EVENT DATE: 20200314
